FAERS Safety Report 4784208-1 (Version None)
Quarter: 2005Q3

REPORT INFORMATION
  Report Type: 
  Country: None (occurrence: None)
  Receive Date: 20050930
  Receipt Date: 20050927
  Transmission Date: 20060218
  Serious: Yes (Hospitalization)
  Sender: FDA-Public Use
  Company Number: FR-RB-2103-2005

PATIENT
  Age: 46 Year
  Sex: Male
  Weight: 50 kg

DRUGS (3)
  1. BUPRENORPHINE HCL [Suspect]
     Indication: DRUG USE FOR UNKNOWN INDICATION
     Route: 048
  2. ZOLPIDEM TARTRATE [Suspect]
     Indication: DRUG USE FOR UNKNOWN INDICATION
     Route: 065
  3. ZUCLOPENTHIXOL DECANOATE [Suspect]
     Indication: DRUG USE FOR UNKNOWN INDICATION
     Dosage: DOSE UNKNOWN
     Route: 030

REACTIONS (3)
  - DIZZINESS [None]
  - FALL [None]
  - ORTHOSTATIC HYPOTENSION [None]
